FAERS Safety Report 10089172 (Version 2)
Quarter: 2014Q2

REPORT INFORMATION
  Report Type: Spontaneous
  Country: US (occurrence: US)
  Receive Date: 20140421
  Receipt Date: 20140515
  Transmission Date: 20141212
  Serious: No
  Sender: FDA-Public Use
  Company Number: US-009507513-1404USA010750

PATIENT
  Age: 66 Year
  Sex: Female
  Weight: 100.68 kg

DRUGS (8)
  1. OXYTROL FOR WOMEN [Suspect]
     Indication: MICTURITION URGENCY
     Dosage: UNK, Q4D
     Route: 062
     Dates: start: 20140316, end: 20140331
  2. OXYTROL FOR WOMEN [Suspect]
     Indication: URINARY INCONTINENCE
  3. LEVOTHYROXINE SODIUM [Concomitant]
     Indication: HYPOTHYROIDISM
     Dosage: UNK, UNKNOWN
  4. ATENOLOL [Concomitant]
     Indication: HYPERTENSION
     Dosage: UNK, UNKNOWN
  5. OMEPRAZOLE [Concomitant]
     Indication: GASTROOESOPHAGEAL REFLUX DISEASE
     Dosage: UNK, UNKNOWN
  6. ALEVE [Concomitant]
     Indication: ARTHRALGIA
     Dosage: UNK, UNKNOWN
  7. HYDROCODONE [Concomitant]
     Indication: ARTHRALGIA
     Dosage: UNK, UNKNOWN
  8. XANTHOPHYLL [Concomitant]
     Indication: PROPHYLAXIS
     Dosage: UNK, UNKNOWN

REACTIONS (1)
  - Drug ineffective [Unknown]
